FAERS Safety Report 11795165 (Version 1)
Quarter: 2015Q4

REPORT INFORMATION
  Report Type: Spontaneous
  Country: CA (occurrence: CA)
  Receive Date: 20151202
  Receipt Date: 20151202
  Transmission Date: 20160305
  Serious: Yes (Other)
  Sender: FDA-Public Use
  Company Number: CA-TEVA-613240ACC

PATIENT
  Age: 75 Year
  Sex: Male
  Weight: 111.23 kg

DRUGS (2)
  1. ACID CONTROL [Suspect]
     Active Substance: FAMOTIDINE
     Indication: GASTROOESOPHAGEAL REFLUX DISEASE
     Dosage: 20 MILLIGRAM DAILY;
     Route: 048
  2. NOVORAPID [Concomitant]
     Active Substance: INSULIN ASPART

REACTIONS (3)
  - Anxiety [Recovered/Resolved]
  - Constipation [Recovered/Resolved]
  - Abdominal distension [Recovered/Resolved]
